FAERS Safety Report 20694438 (Version 1)
Quarter: 2022Q2

REPORT INFORMATION
  Report Type: Spontaneous
  Country: JO (occurrence: JO)
  Receive Date: 20220411
  Receipt Date: 20220411
  Transmission Date: 20220721
  Serious: Yes (Other)
  Sender: FDA-Public Use
  Company Number: JO-BoehringerIngelheim-2022-BI-164462

PATIENT
  Age: 7 Decade
  Sex: Female

DRUGS (1)
  1. GLYXAMBI [Suspect]
     Active Substance: EMPAGLIFLOZIN\LINAGLIPTIN
     Indication: Type 2 diabetes mellitus
     Dosage: GLYXAMBI 25/5

REACTIONS (2)
  - Ketoacidosis [Unknown]
  - Drug ineffective [Unknown]
